FAERS Safety Report 25673550 (Version 1)
Quarter: 2025Q3

REPORT INFORMATION
  Report Type: Spontaneous
  Country: US (occurrence: US)
  Receive Date: 20250813
  Receipt Date: 20250813
  Transmission Date: 20251020
  Serious: No
  Sender: RECKITT BENCKISER
  Company Number: US-PROD-AS2-212756134-20-24-USA-RB-0011549

PATIENT
  Age: 61 Year
  Sex: Female

DRUGS (1)
  1. MUCINEX [Suspect]
     Active Substance: GUAIFENESIN
     Indication: Productive cough
     Dosage: 2 DF, BID
     Route: 048
     Dates: start: 20240915, end: 20240917

REACTIONS (2)
  - Dental plaque [Not Recovered/Not Resolved]
  - Tooth discolouration [Not Recovered/Not Resolved]

NARRATIVE: CASE EVENT DATE: 20240915
